FAERS Safety Report 7129305-0 (Version None)
Quarter: 2010Q4

REPORT INFORMATION
  Report Type: 
  Country: None (occurrence: None)
  Receive Date: 20101112
  Receipt Date: 20101104
  Transmission Date: 20110411
  Serious: Yes (Hospitalization)
  Sender: FDA-Public Use
  Company Number: TPA2010A05713

PATIENT
  Sex: Male

DRUGS (2)
  1. DEXILANT [Suspect]
  2. TRAZODONE (TRAZODONE) [Suspect]
     Indication: SLEEP DISORDER

REACTIONS (1)
  - PRIAPISM [None]
